FAERS Safety Report 9465063 (Version 3)
Quarter: 2013Q3

REPORT INFORMATION
  Report Type: Report from Study
  Country: AU (occurrence: AU)
  Receive Date: 20130819
  Receipt Date: 20130830
  Transmission Date: 20140515
  Serious: Yes (Hospitalization, Other)
  Sender: FDA-Public Use
  Company Number: AU-ROCHE-1263840

PATIENT
  Sex: Female

DRUGS (1)
  1. ACTEMRA [Suspect]
     Indication: RHEUMATOID ARTHRITIS
     Route: 042
     Dates: start: 20120917

REACTIONS (4)
  - Dyspraxia [Not Recovered/Not Resolved]
  - Wound [Recovering/Resolving]
  - Diarrhoea [Not Recovered/Not Resolved]
  - Drug withdrawal syndrome [Unknown]
